FAERS Safety Report 9863256 (Version 1)
Quarter: 2014Q1

REPORT INFORMATION
  Report Type: Spontaneous
  Country: US (occurrence: US)
  Receive Date: 20140203
  Receipt Date: 20140203
  Transmission Date: 20141002
  Serious: No
  Sender: FDA-Public Use
  Company Number: US-TARO-2013P1006678

PATIENT
  Sex: Female

DRUGS (2)
  1. NYSTATIN + TRIAMCINOLONE ACETONIDE CREAM USP [Suspect]
     Dates: start: 20130523, end: 20130524
  2. NYSTATIN + TRIAMCINOLONE ACETONIDE CREAM USP [Suspect]
     Dates: start: 20130525, end: 20130525

REACTIONS (4)
  - Bladder irritation [Recovering/Resolving]
  - Urethritis noninfective [Recovering/Resolving]
  - Cystitis [Recovering/Resolving]
  - Extra dose administered [Unknown]
